FAERS Safety Report 6664730-3 (Version None)
Quarter: 2010Q1

REPORT INFORMATION
  Report Type: 
  Country: None (occurrence: None)
  Receive Date: 20100330
  Receipt Date: 20100317
  Transmission Date: 20100710
  Serious: Yes (Hospitalization)
  Sender: FDA-Public Use
  Company Number: DSM-2009-01495

PATIENT
  Age: 56 Year
  Sex: Male

DRUGS (8)
  1. OLMESARTAN MEDOXOMIL [Suspect]
     Indication: HYPERTENSION
     Dosage: 20 MG (20MG, 1 IN 1 D), ORAL
     Route: 048
     Dates: start: 20090827, end: 20090830
  2. EFFERALGAN (PARACETAMOL (PARACETAMOL) [Suspect]
     Indication: PYREXIA
     Dosage: 3 GM (1 GM, 3 IN 1 D), ORAL
     Route: 048
     Dates: start: 20090828
  3. IBUPROFEN [Suspect]
     Indication: MYALGIA
     Dosage: 600 MG, ORAL
     Route: 048
     Dates: start: 20090828, end: 20090830
  4. TAMIFLU [Suspect]
     Indication: INFLUENZA IMMUNISATION
     Dosage: 150 MG (75 MG, 2 IN 1 D), ORAL
     Route: 048
     Dates: start: 20090828, end: 20090830
  5. BIPERIDEN HYDROCHLORIDE (BIPERIDEN HYDROCHLORIDE) (BIPERIDEN HYDROCHLO [Concomitant]
  6. HALAZEPAM (HALAZEPAM) (HALAZEPAM) [Concomitant]
  7. RISPERIDONE [Concomitant]
  8. CLOMIPRAMINE (CLOMIPRAMINE) (CLOMIPRAMINE) [Concomitant]

REACTIONS (3)
  - HEPATITIS TOXIC [None]
  - RETCHING [None]
  - VOMITING [None]
